FAERS Safety Report 6900245-2 (Version None)
Quarter: 2010Q3

REPORT INFORMATION
  Report Type: 
  Country: None (occurrence: None)
  Receive Date: 20100803
  Receipt Date: 20100728
  Transmission Date: 20110219
  Serious: Yes (Death, Hospitalization)
  Sender: FDA-Public Use
  Company Number: CO-ROCHE-717746

PATIENT
  Sex: Female

DRUGS (3)
  1. XELODA [Suspect]
     Indication: COLORECTAL CANCER
     Dosage: FREQUENCY: EVERYDAY
     Route: 048
     Dates: start: 20100401, end: 20100602
  2. ACETAMINOPHEN WITH CODEINE PHOSPHATE [Concomitant]
     Indication: PAIN
     Dosage: DRUG NAME: ACETAMINOPHEN +CODEINE, DOSE: 500 MG + 30 MG, FREQUENCY: PRN
     Route: 048
  3. TRAMADOL HYDROCHLORIDE [Concomitant]
     Indication: PAIN
     Dosage: FREQUENCY: EVERYDAY
     Route: 048

REACTIONS (2)
  - DISEASE PROGRESSION [None]
  - JAUNDICE [None]
